FAERS Safety Report 16532548 (Version 2)
Quarter: 2019Q3

REPORT INFORMATION
  Report Type: Report from Study
  Country: BE (occurrence: BE)
  Receive Date: 20190704
  Receipt Date: 20190711
  Transmission Date: 20191004
  Serious: Yes (Other)
  Sender: FDA-Public Use
  Company Number: BE-PFIZER INC-2019277651

PATIENT
  Age: 45 Year
  Sex: Female
  Weight: 68.2 kg

DRUGS (20)
  1. LEUCOVORIN [FOLINIC ACID] [Suspect]
     Active Substance: LEUCOVORIN
     Indication: COLORECTAL CANCER METASTATIC
     Dosage: 1 UNK, EVERY TWO WEEKS, ON 12DEC2018, SHE RECEIVED MOST RECENT DOSE 322 (UNIT NOT REPORTED)
     Route: 042
     Dates: start: 20180822
  2. OESTROGEL [Concomitant]
     Active Substance: ESTRADIOL
     Dosage: UNK
     Route: 065
     Dates: start: 2015
  3. FLUOROURACIL. [Suspect]
     Active Substance: FLUOROURACIL
     Indication: COLORECTAL CANCER METASTATIC
     Dosage: 1 UNK, EVERY TWO WEEKS. ON 12/DEC/2018, SHE RECEIVED MOST RECENT DOSE 322 (UNIT NOT REPORTED)
     Route: 042
     Dates: start: 20180822
  4. IRINOTECAN HCL [Suspect]
     Active Substance: IRINOTECAN HYDROCHLORIDE
     Dosage: 319.68 MG, EVERY TWO WEEKS
     Route: 042
     Dates: start: 20190402
  5. CODEINE [Concomitant]
     Active Substance: CODEINE
     Dosage: UNK
     Route: 065
     Dates: start: 201809
  6. BEVACIZUMAB. [Suspect]
     Active Substance: BEVACIZUMAB
     Indication: COLORECTAL CANCER METASTATIC
     Dosage: 1 UNK, EVERY TWO WEEKS  ON 12/DEC/2018, SHE RECEIVED MOST RECENT DOSE 716 (UNIT NOT REPORTED)
     Route: 042
     Dates: start: 20180822
  7. OMEPRAZOL [OMEPRAZOLE] [Concomitant]
     Active Substance: OMEPRAZOLE
     Indication: PROPHYLAXIS
     Dosage: UNK
     Route: 065
     Dates: start: 201801
  8. IRINOTECAN HCL [Suspect]
     Active Substance: IRINOTECAN HYDROCHLORIDE
     Dosage: 322 MG, EVERY TWO WEEKS
     Route: 042
     Dates: start: 20181212
  9. LEUCOVORIN [FOLINIC ACID] [Suspect]
     Active Substance: LEUCOVORIN
     Dosage: 4300 MG, EVERY TWO WEEKS
     Route: 042
     Dates: start: 20181212
  10. CODEINE [Concomitant]
     Active Substance: CODEINE
     Dosage: UNK
     Route: 065
     Dates: start: 20181002
  11. FLUOROURACIL. [Suspect]
     Active Substance: FLUOROURACIL
     Dosage: 710.4 MG, EVERY TWO WEEKS
     Route: 042
     Dates: start: 20190402
  12. BEVACIZUMAB. [Suspect]
     Active Substance: BEVACIZUMAB
     Dosage: 343 MG, EVERY TWO WEEKS
     Route: 042
     Dates: start: 20181212
  13. IRINOTECAN HCL [Suspect]
     Active Substance: IRINOTECAN HYDROCHLORIDE
     Indication: COLORECTAL CANCER METASTATIC
     Dosage: 1 UNK, EVERY TWO WEEKS.ON 12/DEC/2018, SHE RECEIVED MOST RECENT DOSE 4300 (UNIT NOT REPORTED)
     Route: 042
     Dates: start: 20180822
  14. BEVACIZUMAB. [Suspect]
     Active Substance: BEVACIZUMAB
     Dosage: 343 MG, EVERY TWO WEEKS
     Route: 042
     Dates: start: 20190402
  15. LEUCOVORIN [FOLINIC ACID] [Suspect]
     Active Substance: LEUCOVORIN
     Dosage: 1 UNK, EVERY TWO WEEKS
     Route: 042
     Dates: start: 20190402
  16. L THYROXINE [Concomitant]
     Active Substance: LEVOTHYROXINE SODIUM
     Dosage: UNK
     Route: 065
     Dates: start: 20170706
  17. DAFALGAN [Concomitant]
     Active Substance: ACETAMINOPHEN
     Indication: PROPHYLAXIS
     Dosage: UNK
     Route: 065
     Dates: start: 2014
  18. MOTILIUM [Concomitant]
     Active Substance: DOMPERIDONE
     Indication: PROPHYLAXIS
     Dosage: UNK
     Route: 065
     Dates: start: 201801
  19. FLUOROURACIL. [Suspect]
     Active Substance: FLUOROURACIL
     Dosage: 4300 MG, EVERY TWO WEEKS
     Route: 042
     Dates: start: 20181212
  20. MACROGOL [Concomitant]
     Active Substance: POLYETHYLENE GLYCOLS
     Indication: PROPHYLAXIS
     Dosage: UNK
     Route: 065
     Dates: start: 201501

REACTIONS (19)
  - Dizziness [Recovered/Resolved]
  - Skin discolouration [Unknown]
  - Headache [Recovered/Resolved]
  - Asthenia [Not Recovered/Not Resolved]
  - Diarrhoea [Recovered/Resolved]
  - Hiccups [Recovered/Resolved]
  - Dyspnoea [Not Recovered/Not Resolved]
  - Back pain [Recovered/Resolved]
  - Epistaxis [Not Recovered/Not Resolved]
  - Pulmonary embolism [Not Recovered/Not Resolved]
  - Abdominal discomfort [Not Recovered/Not Resolved]
  - Chest pain [Recovered/Resolved]
  - Decreased appetite [Unknown]
  - Back pain [Recovered/Resolved]
  - Diarrhoea [Recovered/Resolved]
  - Constipation [Recovered/Resolved]
  - Oropharyngeal pain [Recovered/Resolved]
  - Vomiting [Recovered/Resolved]
  - Nausea [Not Recovered/Not Resolved]

NARRATIVE: CASE EVENT DATE: 20180822
